FAERS Safety Report 8367211-4 (Version None)
Quarter: 2012Q2

REPORT INFORMATION
  Report Type: 
  Country: None (occurrence: None)
  Receive Date: 20120517
  Receipt Date: 20120514
  Transmission Date: 20120825
  Serious: Yes (Death, Other)
  Sender: FDA-Public Use
  Company Number: PHHY2012JP040902

PATIENT
  Age: 67 Year
  Sex: Female

DRUGS (4)
  1. PREDNISOLONE SODIUM SUCCINATE INJ [Suspect]
     Indication: INTERSTITIAL LUNG DISEASE
     Dosage: 12 MG, PER DAY
     Route: 048
  2. TACROLIMUS [Suspect]
     Indication: INTERSTITIAL LUNG DISEASE
  3. TACROLIMUS [Suspect]
     Indication: STILL'S DISEASE ADULT ONSET
     Dosage: 3 MG, PER DAY
     Route: 048
  4. PREDNISOLONE SODIUM SUCCINATE INJ [Suspect]
     Indication: STILL'S DISEASE ADULT ONSET

REACTIONS (8)
  - PNEUMOCYSTIS JIROVECI INFECTION [None]
  - ASPERGILLOSIS [None]
  - SUBCUTANEOUS NODULE [None]
  - SUBCUTANEOUS ABSCESS [None]
  - INTERSTITIAL LUNG DISEASE [None]
  - HERPES ZOSTER [None]
  - POST HERPETIC NEURALGIA [None]
  - CYTOMEGALOVIRUS INFECTION [None]
